FAERS Safety Report 9326105 (Version 2)
Quarter: 2013Q4

REPORT INFORMATION
  Report Type: Spontaneous
  Country: US (occurrence: US)
  Receive Date: 20130604
  Receipt Date: 20131108
  Transmission Date: 20140711
  Serious: Yes (Hospitalization)
  Sender: FDA-Public Use
  Company Number: US-B.I. PHARMACEUTICALS,INC./RIDGEFIELD-2013-BI-15596BP

PATIENT
  Age: 61 Year
  Sex: Male
  Weight: 70.31 kg

DRUGS (15)
  1. PRADAXA [Suspect]
     Indication: ANTICOAGULANT THERAPY
     Dosage: 300 MG
     Route: 048
     Dates: start: 20110502, end: 20111222
  2. PRADAXA [Suspect]
     Indication: CARDIAC VALVE PROSTHESIS USER
  3. WELLBUTRIN XL [Concomitant]
     Indication: DEPRESSION
     Dosage: 300 MG
     Route: 048
  4. KLONOPIN [Concomitant]
     Route: 048
  5. FISH OIL [Concomitant]
     Route: 048
  6. NEURONTIN [Concomitant]
     Indication: NEURALGIA
     Dosage: 3200 MG
     Route: 048
  7. HYDRODIURIL [Concomitant]
     Dosage: 25 MG
     Route: 048
  8. TOPROL XL [Concomitant]
     Dosage: 50 MG
     Route: 048
  9. REMERON [Concomitant]
     Dosage: 40 MG
     Route: 048
  10. ZOCOR [Concomitant]
     Dosage: 40 MG
     Route: 048
  11. DILAUDID [Concomitant]
     Dosage: 6.885 MG
  12. FENTANYL [Concomitant]
     Dosage: 275.4 MCG
  13. BUPIVACAINE [Concomitant]
     Dosage: 4.819 MG
  14. BACLOFEN [Concomitant]
     Dosage: 34.42 MCG
  15. BACLOFEN [Concomitant]
     Dosage: 60 MG
     Route: 048

REACTIONS (4)
  - Gastrointestinal haemorrhage [Unknown]
  - Renal failure acute [Unknown]
  - Respiratory failure [Unknown]
  - Anaemia [Unknown]
